FAERS Safety Report 9519758 (Version 3)
Quarter: 2014Q1

REPORT INFORMATION
  Report Type: Spontaneous
  Country: DE (occurrence: DE)
  Receive Date: 20130912
  Receipt Date: 20140107
  Transmission Date: 20141002
  Serious: Yes (Other)
  Sender: FDA-Public Use
  Company Number: DE-CELGENEUS-062-21880-13041040

PATIENT
  Sex: 0

DRUGS (1)
  1. REVLIMID [Suspect]
     Indication: PLASMA CELL MYELOMA
     Dosage: 10-25MG
     Route: 048
     Dates: start: 2008, end: 2011

REACTIONS (6)
  - Head and neck cancer [Unknown]
  - Herpes simplex meningoencephalitis [Unknown]
  - Cauda equina syndrome [Unknown]
  - Stevens-Johnson syndrome [Unknown]
  - Herpes zoster [Unknown]
  - Herpes virus infection [Unknown]
